FAERS Safety Report 13697966 (Version 1)
Quarter: 2017Q2

REPORT INFORMATION
  Report Type: Other
  Country: CA (occurrence: CA)
  Receive Date: 20170628
  Receipt Date: 20170628
  Transmission Date: 20170830
  Serious: Yes (Other)
  Sender: FDA-Public Use
  Company Number: CA-APOTEX-2017AP013335

PATIENT
  Age: 34 Month
  Sex: Female

DRUGS (1)
  1. APO-OMEPRAZOLE [Suspect]
     Active Substance: OMEPRAZOLE
     Indication: GASTROINTESTINAL DISORDER
     Dosage: 10 MG, BID
     Route: 065

REACTIONS (5)
  - Autism spectrum disorder [Recovering/Resolving]
  - Speech disorder [Recovering/Resolving]
  - Off label use [Recovering/Resolving]
  - Communication disorder [Recovering/Resolving]
  - Antisocial behaviour [Recovering/Resolving]
